FAERS Safety Report 8198039-6 (Version None)
Quarter: 2012Q1

REPORT INFORMATION
  Report Type: 
  Country: None (occurrence: None)
  Receive Date: 20120309
  Receipt Date: 20120302
  Transmission Date: 20120608
  Serious: Yes (Hospitalization, Other)
  Sender: FDA-Public Use
  Company Number: US-JNJFOC-20120206919

PATIENT
  Sex: Male
  Weight: 119.3 kg

DRUGS (2)
  1. LORTAB [Concomitant]
     Indication: PAIN
     Route: 048
     Dates: start: 20120121
  2. XARELTO [Suspect]
     Indication: THROMBOSIS PROPHYLAXIS
     Route: 048
     Dates: start: 20120121, end: 20120204

REACTIONS (1)
  - DEEP VEIN THROMBOSIS [None]
